FAERS Safety Report 10023005 (Version 1)
Quarter: 2014Q1

REPORT INFORMATION
  Report Type: Spontaneous
  Country: US (occurrence: US)
  Receive Date: 20140319
  Receipt Date: 20140319
  Transmission Date: 20141002
  Serious: No
  Sender: FDA-Public Use
  Company Number: -SAAVPROD-LEUK-1000362

PATIENT
  Age: 45 Year
  Sex: Female

DRUGS (1)
  1. SARGRAMOSTIM [Suspect]
     Indication: PRODUCT USED FOR UNKNOWN INDICATION
     Dosage: UNK (PUSH DOSE)
     Route: 042

REACTIONS (1)
  - White blood cell count increased [Unknown]
